FAERS Safety Report 4997632-9 (Version None)
Quarter: 2006Q1

REPORT INFORMATION
  Report Type: 
  Country: None (occurrence: None)
  Receive Date: 20060315
  Receipt Date: 20060118
  Transmission Date: 20060701
  Serious: Yes (Other)
  Sender: FDA-Public Use
  Company Number: 432871

PATIENT
  Sex: Female

DRUGS (2)
  1. BONIVA [Suspect]
  2. VITAMINS NOS (VITAMINS NOS) [Concomitant]

REACTIONS (1)
  - GINGIVAL BLEEDING [None]
